FAERS Safety Report 11152389 (Version 1)
Quarter: 2015Q2

REPORT INFORMATION
  Report Type: Report from Study
  Country: CZ (occurrence: CZ)
  Receive Date: 20150601
  Receipt Date: 20150601
  Transmission Date: 20150821
  Serious: Yes (Death, Other)
  Sender: FDA-Public Use
  Company Number: PHHY2015CZ058948

PATIENT
  Sex: Male

DRUGS (1)
  1. TASIGNA [Suspect]
     Active Substance: NILOTINIB
     Indication: CHRONIC MYELOID LEUKAEMIA
     Route: 065
     Dates: start: 20130227, end: 20130916

REACTIONS (6)
  - Platelet count abnormal [Unknown]
  - Haemoglobin decreased [Unknown]
  - White blood cell count abnormal [Unknown]
  - Neutrophil count decreased [Unknown]
  - Blood sodium decreased [Unknown]
  - Post procedural complication [Fatal]
